FAERS Safety Report 10073652 (Version 2)
Quarter: 2014Q2

REPORT INFORMATION
  Report Type: Spontaneous
  Country: CN (occurrence: CN)
  Receive Date: 20140411
  Receipt Date: 20140623
  Transmission Date: 20141212
  Serious: Yes (Hospitalization)
  Sender: FDA-Public Use
  Company Number: PHHY2014CN041321

PATIENT
  Age: 70 Year
  Sex: Male

DRUGS (3)
  1. LAMOTRIGINE [Suspect]
     Indication: EPILEPSY
     Dosage: 25-50 MG, QD
  2. VALPROIC ACID [Concomitant]
     Indication: EPILEPSY
     Dosage: 0.5 MG, BID
     Route: 048
  3. NIMODIPINE [Concomitant]
     Indication: HEADACHE
     Dosage: 30 MG, QD
     Route: 048

REACTIONS (24)
  - Infectious mononucleosis [Recovering/Resolving]
  - Drug reaction with eosinophilia and systemic symptoms [Recovering/Resolving]
  - Rash [Recovering/Resolving]
  - Pyrexia [Recovered/Resolved]
  - Oropharyngeal pain [Recovering/Resolving]
  - Dysphagia [Recovering/Resolving]
  - Cough [Recovering/Resolving]
  - Productive cough [Recovering/Resolving]
  - Photosensitivity reaction [Recovering/Resolving]
  - Drug eruption [Recovering/Resolving]
  - Transaminases increased [Recovering/Resolving]
  - Erythema [Recovering/Resolving]
  - Erythema annulare [Recovering/Resolving]
  - Petechiae [Recovering/Resolving]
  - Epstein-Barr virus antibody positive [Recovering/Resolving]
  - Dermatitis [Recovering/Resolving]
  - Tonsillar hypertrophy [Unknown]
  - Ecchymosis [Unknown]
  - Eyelid oedema [Unknown]
  - Pleural fibrosis [Unknown]
  - Skin erosion [Unknown]
  - Drug-induced liver injury [Unknown]
  - Skin exfoliation [Unknown]
  - Rash generalised [Recovering/Resolving]
